FAERS Safety Report 4884313-5 (Version None)
Quarter: 2005Q4

REPORT INFORMATION
  Report Type: 
  Country: None (occurrence: None)
  Receive Date: 20051201
  Receipt Date: 20050830
  Transmission Date: 20060501
  Serious: No
  Sender: FDA-Public Use
  Company Number: 2005PV001689

PATIENT
  Age: 63 Year
  Sex: Female
  Weight: 100.6985 kg

DRUGS (8)
  1. BYETTA [Suspect]
     Indication: DIABETES MELLITUS NON-INSULIN-DEPENDENT
     Dosage: 10 MCG; BID; SC
     Route: 058
     Dates: start: 20050802
  2. METFORMIN [Concomitant]
  3. GLYBURIDE AND METFORMIN HCL [Concomitant]
  4. DIOVAN [Concomitant]
  5. HYDROCHLOROTHIAZIDE [Concomitant]
  6. INSPRA [Concomitant]
  7. ASCORBIC ACID [Concomitant]
  8. OSTEO 7 [Concomitant]

REACTIONS (3)
  - CONSTIPATION [None]
  - PRURITUS [None]
  - WEIGHT DECREASED [None]
